FAERS Safety Report 8578574-9 (Version None)
Quarter: 2012Q3

REPORT INFORMATION
  Report Type: 
  Country: None (occurrence: None)
  Receive Date: 20120726
  Receipt Date: 20120711
  Transmission Date: 20120928
  Serious: Yes (Hospitalization)
  Sender: FDA-Public Use
  Company Number: 120316

PATIENT
  Age: 65 Year
  Sex: Male
  Weight: 69.8539 kg

DRUGS (2)
  1. SIMVASTATIN [Concomitant]
  2. HALFLYTELY WITH BISACODYL TABLET [Suspect]
     Indication: COLONOSCOPY
     Dosage: ORAL
     Route: 048
     Dates: start: 20120111, end: 20120111

REACTIONS (11)
  - THROMBOPHLEBITIS [None]
  - RED BLOOD CELL COUNT DECREASED [None]
  - CEREBROVASCULAR ACCIDENT [None]
  - CAROTID ARTERY OCCLUSION [None]
  - RESPIRATORY FUME INHALATION DISORDER [None]
  - CYTOTOXIC OEDEMA [None]
  - GASTROINTESTINAL HAEMORRHAGE [None]
  - CARBON MONOXIDE POISONING [None]
  - HAEMOGLOBIN DECREASED [None]
  - HAEMATOCRIT DECREASED [None]
  - PYREXIA [None]
